FAERS Safety Report 16050570 (Version 1)
Quarter: 2019Q1

REPORT INFORMATION
  Report Type: Spontaneous
  Country: FR (occurrence: FR)
  Receive Date: 20190308
  Receipt Date: 20190308
  Transmission Date: 20190418
  Serious: Yes (Hospitalization)
  Sender: FDA-Public Use
  Company Number: FR-ACCORD-111100

PATIENT
  Age: 79 Year
  Sex: Female

DRUGS (12)
  1. BISOPROLOL QUIVER [Concomitant]
     Active Substance: BISOPROLOL FUMARATE
     Dosage: STRENGTH: 2.5 MG, SCORED TABLET
     Route: 048
  2. DOLIPRANE [Concomitant]
     Active Substance: ACETAMINOPHEN
     Dosage: IF NECESSARY
     Route: 048
  3. IMOVANE [Concomitant]
     Active Substance: ZOPICLONE
     Dosage: STRENGTH: 3.75 MG
     Route: 048
  4. VENLAFAXINE/VENLAFAXINE HYDROCHLORIDE [Concomitant]
     Route: 048
  5. LIPTRUZET [Concomitant]
     Active Substance: ATORVASTATIN CALCIUM\EZETIMIBE
     Dosage: STRENGTH: 10 MG / 20 MG
     Route: 048
  6. ALLOPURINOL. [Suspect]
     Active Substance: ALLOPURINOL
     Indication: GOUT
     Route: 048
     Dates: start: 20180524, end: 20180616
  7. LYRICA [Suspect]
     Active Substance: PREGABALIN
     Indication: PAIN
     Dosage: STRENGTH: 150 MG
     Route: 048
     Dates: start: 20180428, end: 20180616
  8. INEXIUM [Concomitant]
     Active Substance: ESOMEPRAZOLE
     Dosage: STRENGTH: 20 MG
     Route: 048
  9. ASPIRINE PROTECT [Concomitant]
     Active Substance: ASPIRIN
     Dosage: STRENGTH:  100 MG
     Route: 048
  10. LASILIX RETARD [Concomitant]
     Active Substance: FUROSEMIDE
     Dosage: STRENGTH:  60 MG
     Route: 048
  11. TASIGNA [Concomitant]
     Active Substance: NILOTINIB
     Dosage: STRENGTH: 200 MG
     Route: 048
  12. AMLOR [Concomitant]
     Active Substance: AMLODIPINE BESYLATE
     Dosage: STRENGTH: 5 MG
     Route: 048

REACTIONS (1)
  - Drug reaction with eosinophilia and systemic symptoms [Recovered/Resolved]

NARRATIVE: CASE EVENT DATE: 20180604
